FAERS Safety Report 6566774-9 (Version None)
Quarter: 2010Q1

REPORT INFORMATION
  Report Type: 
  Country: None (occurrence: None)
  Receive Date: 20100202
  Receipt Date: 20100127
  Transmission Date: 20100710
  Serious: Yes (Life-Threatening, Hospitalization, Other)
  Sender: FDA-Public Use
  Company Number: FR-ELI_LILLY_AND_COMPANY-FR201001005455

PATIENT
  Sex: Female
  Weight: 74 kg

DRUGS (9)
  1. PEMETREXED [Suspect]
     Indication: PLEURAL MESOTHELIOMA
     Dosage: 910 MG, ONCE EVERY 21 DAYS
     Route: 042
     Dates: start: 20080227, end: 20080227
  2. PEMETREXED [Suspect]
     Dosage: 450 MG, ON DAY ONE EVERY 21 DAYS
     Route: 042
     Dates: start: 20080319, end: 20080319
  3. CISPLATIN [Suspect]
     Indication: PLEURAL MESOTHELIOMA
     Dosage: 135 MG, UNK
     Route: 042
     Dates: start: 20080227, end: 20080227
  4. CISPLATIN [Suspect]
     Dosage: 67 MG, UNK
     Route: 042
     Dates: start: 20080319, end: 20080319
  5. FOLIC ACID [Concomitant]
     Indication: VITAMIN SUPPLEMENTATION
  6. VITAMIN B-12 [Concomitant]
     Indication: VITAMIN SUPPLEMENTATION
  7. ONDANSETRON HCL [Concomitant]
  8. APREPITANT [Concomitant]
  9. PRIMPERAN /00041901/ [Concomitant]

REACTIONS (4)
  - MUCOSAL INFLAMMATION [None]
  - NEUTROPENIA [None]
  - PERICARDIAL EFFUSION [None]
  - THROMBOCYTOPENIA [None]
